FAERS Safety Report 11265432 (Version 1)
Quarter: 2015Q3

REPORT INFORMATION
  Report Type: Spontaneous
  Country: JP (occurrence: JP)
  Receive Date: 20150713
  Receipt Date: 20150713
  Transmission Date: 20151125
  Serious: Yes (Other)
  Sender: FDA-Public Use
  Company Number: JP-ACTAVIS-2015-14280

PATIENT
  Age: 82 Year
  Sex: Female
  Weight: 47 kg

DRUGS (12)
  1. MECOBALAMIN [Suspect]
     Active Substance: METHYLCOBALAMIN
     Indication: NEUROPATHY PERIPHERAL
     Dosage: 1500 MG, DAILY
     Route: 048
     Dates: end: 20150616
  2. EDIROL [Suspect]
     Active Substance: ELDECALCITOL
     Indication: OSTEOPOROSIS
     Dosage: 0.75 ?G, DAILY
     Route: 048
     Dates: end: 20150616
  3. BONOTEO [Suspect]
     Active Substance: MINODRONIC ACID
     Indication: OSTEOPOROSIS
     Dosage: 50 MG, ONCE A MONTH
     Route: 048
     Dates: end: 20150616
  4. ISOSORBIDE MONONITRATE. [Concomitant]
     Active Substance: ISOSORBIDE MONONITRATE
     Indication: AORTIC VALVE STENOSIS
     Dosage: 40 MG, DAILY
     Route: 048
  5. OPALMON [Concomitant]
     Active Substance: LIMAPROST
     Indication: PRODUCT USED FOR UNKNOWN INDICATION
     Dosage: 15 MG, DAILY
     Route: 048
  6. TENELIA [Concomitant]
     Active Substance: CITALOPRAM HYDROBROMIDE
     Indication: DIABETES MELLITUS
     Dosage: 20 MG, DAILY
     Route: 048
     Dates: end: 20150617
  7. FEBURIC [Suspect]
     Active Substance: FEBUXOSTAT
     Indication: HYPERURICAEMIA
     Dosage: 10 MG, DAILY
     Route: 048
     Dates: end: 20150616
  8. CELECOX [Suspect]
     Active Substance: CELECOXIB
     Indication: BACK PAIN
     Dosage: 200 MG, DAILY
     Route: 048
     Dates: end: 20150616
  9. MOHRUS [Concomitant]
     Active Substance: KETOPROFEN
     Indication: BACK PAIN
     Dosage: 60 MG, DAILY
     Route: 061
  10. URSO [Suspect]
     Active Substance: URSODIOL
     Indication: HEPATIC CIRRHOSIS
     Dosage: 300 MG, DAILY
     Route: 048
     Dates: end: 20150616
  11. LOSARTAN. [Concomitant]
     Active Substance: LOSARTAN
     Indication: HYPERTENSION
     Dosage: 50 MG, DAILY
     Route: 048
  12. VOGLIBOSE [Concomitant]
     Active Substance: VOGLIBOSE
     Indication: DIABETES MELLITUS
     Dosage: 0.9 MG, DAILY
     Route: 048
     Dates: end: 20150617

REACTIONS (1)
  - Hypokalaemia [Recovered/Resolved]

NARRATIVE: CASE EVENT DATE: 20150615
